FAERS Safety Report 15427809 (Version 6)
Quarter: 2021Q4

REPORT INFORMATION
  Report Type: Report from Study
  Country: US (occurrence: US)
  Receive Date: 20180926
  Receipt Date: 20211005
  Transmission Date: 20220303
  Serious: Yes (Death, Hospitalization)
  Sender: FDA-Public Use
  Company Number: US-ROCHE-2176184

PATIENT
  Age: 60 Year
  Sex: Female
  Weight: 103.6 kg

DRUGS (49)
  1. ATEZOLIZUMAB [Suspect]
     Active Substance: ATEZOLIZUMAB
     Indication: Ovarian cancer
     Dosage: DATE OF MOST RECENT DOSE ON 15/AUG/2018
     Route: 041
     Dates: start: 20180815
  2. PACLITAXEL [Suspect]
     Active Substance: PACLITAXEL
     Indication: Ovarian cancer
     Dosage: AS PER PROTOCOL: PACLITAXEL 175 MILLIGRAMS PER SQUARE METER (MG/M^2) IV INFUSION?DATE OF MOST RECENT
     Route: 042
     Dates: start: 20180815
  3. CARBOPLATIN [Suspect]
     Active Substance: CARBOPLATIN
     Indication: Ovarian cancer
     Dosage: AS PER PROTOCOL: CARBOPLATIN AT A DOSE TO ACHIEVE A TARGET AREA UNDER THE CURVE (AUC) OF 6 MILLIGRAM
     Route: 042
     Dates: start: 20180815
  4. BUPROPION HYDROCHLORIDE [Concomitant]
     Active Substance: BUPROPION HYDROCHLORIDE
     Indication: Anxiety
     Dates: start: 20180811, end: 20190411
  5. BUPROPION HYDROCHLORIDE [Concomitant]
     Active Substance: BUPROPION HYDROCHLORIDE
     Indication: Depression
  6. AMBIEN [Concomitant]
     Active Substance: ZOLPIDEM TARTRATE
     Indication: Insomnia
     Dates: start: 20180814
  7. COLACE [Concomitant]
     Active Substance: DOCUSATE SODIUM
     Indication: Constipation
     Dates: start: 20180723
  8. OXYCODONE [Concomitant]
     Active Substance: OXYCODONE
     Indication: Procedural pain
     Dates: start: 201807
  9. PEPCID AC [Concomitant]
     Active Substance: FAMOTIDINE
     Indication: Gastrooesophageal reflux disease
     Dates: start: 2016, end: 20180903
  10. PROCHLORPERAZINE MALEATE [Concomitant]
     Active Substance: PROCHLORPERAZINE MALEATE
     Indication: Nausea
     Dates: start: 20180808, end: 20181219
  11. TRAMADOL [Concomitant]
     Active Substance: TRAMADOL
     Indication: Procedural pain
     Dates: start: 20180723
  12. XANAX [Concomitant]
     Active Substance: ALPRAZOLAM
     Indication: Anxiety
     Dates: start: 20180723
  13. FAMOTIDINE [Concomitant]
     Active Substance: FAMOTIDINE
     Indication: Chemotherapy side effect prophylaxis
     Dates: start: 20180815, end: 20180815
  14. FAMOTIDINE [Concomitant]
     Active Substance: FAMOTIDINE
     Indication: Oesophagitis
     Dates: start: 20180912, end: 20180912
  15. FAMOTIDINE [Concomitant]
     Active Substance: FAMOTIDINE
     Dates: start: 20180827, end: 20180903
  16. FOSAPREPITANT DIMEGLUMINE [Concomitant]
     Active Substance: FOSAPREPITANT DIMEGLUMINE
     Indication: Chemotherapy side effect prophylaxis
     Dates: start: 20180815, end: 20180815
  17. FOSAPREPITANT DIMEGLUMINE [Concomitant]
     Active Substance: FOSAPREPITANT DIMEGLUMINE
     Dates: start: 20180912, end: 20180912
  18. FOSAPREPITANT DIMEGLUMINE [Concomitant]
     Active Substance: FOSAPREPITANT DIMEGLUMINE
     Dates: start: 20181003, end: 20181003
  19. ONDANSETRON [Concomitant]
     Active Substance: ONDANSETRON
     Indication: Chemotherapy side effect prophylaxis
     Dates: start: 20180815, end: 20180815
  20. ONDANSETRON [Concomitant]
     Active Substance: ONDANSETRON
     Dates: start: 20180912, end: 20180912
  21. EMLA [Concomitant]
     Active Substance: LIDOCAINE\PRILOCAINE
     Dates: start: 20180814
  22. DEXAMETHASONE [Concomitant]
     Active Substance: DEXAMETHASONE
     Route: 048
     Dates: start: 20180814, end: 20180815
  23. DEXAMETHASONE [Concomitant]
     Active Substance: DEXAMETHASONE
     Route: 048
     Dates: start: 20181003, end: 20181003
  24. DIPHENHYDRAMINE [Concomitant]
     Active Substance: DIPHENHYDRAMINE
     Indication: Chemotherapy side effect prophylaxis
     Dates: start: 20180912, end: 20180912
  25. DIPHENHYDRAMINE [Concomitant]
     Active Substance: DIPHENHYDRAMINE
     Indication: Dyspnoea exertional
     Dates: start: 20180901, end: 20180926
  26. DIPHENHYDRAMINE [Concomitant]
     Active Substance: DIPHENHYDRAMINE
     Dates: start: 20181003, end: 20181003
  27. ALUMINUM HYDROXIDE\MAGNESIUM HYDROXIDE [Concomitant]
     Active Substance: ALUMINUM HYDROXIDE\MAGNESIUM HYDROXIDE
     Indication: Chemotherapy side effect prophylaxis
     Dates: start: 20180912, end: 20180912
  28. NEULASTA [Concomitant]
     Active Substance: PEGFILGRASTIM
     Dates: start: 20180913, end: 20180913
  29. CLARITIN [Concomitant]
     Active Substance: LORATADINE
     Indication: Dyspnoea exertional
     Dates: start: 20180912, end: 20181119
  30. FUROSEMIDE [Concomitant]
     Active Substance: FUROSEMIDE
     Indication: Oedema peripheral
     Dates: start: 20180904
  31. IBUPROFEN [Concomitant]
     Active Substance: IBUPROFEN
     Indication: Pain
     Dates: start: 20180724
  32. MIRALAX [Concomitant]
     Active Substance: POLYETHYLENE GLYCOL 3350
     Indication: Constipation
     Dates: start: 20180909, end: 20190404
  33. PROTONIX [Concomitant]
     Active Substance: PANTOPRAZOLE SODIUM
     Indication: Gastrooesophageal reflux disease
     Dates: start: 20180904
  34. CIPROFLOXACIN [Concomitant]
     Active Substance: CIPROFLOXACIN
     Indication: Febrile neutropenia
     Dates: start: 20180901, end: 20180902
  35. ONDANSETRON [Concomitant]
     Active Substance: ONDANSETRON
     Indication: Chemotherapy side effect prophylaxis
     Dates: start: 20181003, end: 20181003
  36. ONDANSETRON [Concomitant]
     Active Substance: ONDANSETRON
     Dates: start: 20180826, end: 20180903
  37. FAMOTIDINE [Concomitant]
     Active Substance: FAMOTIDINE
     Indication: Chemotherapy side effect prophylaxis
     Dates: start: 20181003, end: 20181003
  38. DILAUDID [Concomitant]
     Active Substance: HYDROMORPHONE HYDROCHLORIDE
     Indication: Neuralgia
     Dates: start: 20181011, end: 20190514
  39. PROCHLORPERAZINE [Concomitant]
     Active Substance: PROCHLORPERAZINE
     Indication: Nausea
     Dates: start: 20180826, end: 20180903
  40. ACETAMINOPHEN [Concomitant]
     Active Substance: ACETAMINOPHEN
     Indication: Pyrexia
     Dates: start: 20180826, end: 20180903
  41. PIPERACILLIN SODIUM\TAZOBACTAM SODIUM [Concomitant]
     Active Substance: PIPERACILLIN SODIUM\TAZOBACTAM SODIUM
     Indication: Sepsis
     Dates: start: 20180826, end: 20180830
  42. VANCOMYCIN [Concomitant]
     Active Substance: VANCOMYCIN
     Indication: Sepsis
     Dates: start: 20180826, end: 20180830
  43. POTASSIUM CHLORIDE [Concomitant]
     Active Substance: POTASSIUM CHLORIDE
     Indication: Supplementation therapy
     Dates: start: 20180827, end: 20180903
  44. MAGNESIUM SULFATE [Concomitant]
     Active Substance: MAGNESIUM SULFATE
     Indication: Supplementation therapy
     Dates: start: 20180827, end: 20180903
  45. NEUPOGEN [Concomitant]
     Active Substance: FILGRASTIM
     Indication: Neutropenia
     Dates: start: 20180828, end: 20180903
  46. FUROSEMIDE [Concomitant]
     Active Substance: FUROSEMIDE
     Indication: Pulmonary oedema
     Dates: start: 20180829, end: 20180903
  47. ALBUTEROL [Concomitant]
     Active Substance: ALBUTEROL
     Indication: Dyspnoea
     Dates: start: 20180829, end: 20180903
  48. BACTRIM [Concomitant]
     Active Substance: SULFAMETHOXAZOLE\TRIMETHOPRIM
     Indication: Prophylaxis
     Dates: start: 20181002, end: 20181109
  49. BACTRIM [Concomitant]
     Active Substance: SULFAMETHOXAZOLE\TRIMETHOPRIM
     Indication: Pneumocystis jirovecii pneumonia

REACTIONS (1)
  - Systemic immune activation [Recovered/Resolved]

NARRATIVE: CASE EVENT DATE: 20180823
